FAERS Safety Report 25343387 (Version 1)
Quarter: 2025Q2

REPORT INFORMATION
  Report Type: Spontaneous
  Country: DE (occurrence: DE)
  Receive Date: 20250521
  Receipt Date: 20250521
  Transmission Date: 20250716
  Serious: No
  Sender: UCB
  Company Number: DE-UCBSA-2025027689

PATIENT
  Age: 81 Year
  Sex: Female

DRUGS (1)
  1. NEUPRO [Suspect]
     Active Substance: ROTIGOTINE
     Indication: Product used for unknown indication
     Dosage: 3 MILLIGRAM, ONCE DAILY (QD)
     Route: 062

REACTIONS (2)
  - Application site reaction [Unknown]
  - Product adhesion issue [Unknown]
